FAERS Safety Report 10252921 (Version 1)
Quarter: 2014Q2

REPORT INFORMATION
  Report Type: Spontaneous
  Country: US (occurrence: US)
  Receive Date: 20140623
  Receipt Date: 20140623
  Transmission Date: 20141212
  Serious: No
  Sender: FDA-Public Use
  Company Number: US-PFIZER INC-2014172040

PATIENT
  Age: 9 Year
  Sex: Male
  Weight: 29.25 kg

DRUGS (2)
  1. QUILLIVANT XR [Suspect]
     Indication: ATTENTION DEFICIT/HYPERACTIVITY DISORDER
     Dosage: ONE TEASPOON, 1X/DAY
     Route: 048
     Dates: start: 20140424, end: 20140618
  2. QUILLIVANT XR [Suspect]
     Dosage: (ONE AND HALF A TEASPOON)
     Dates: start: 20140619

REACTIONS (1)
  - Drug effect incomplete [Unknown]
